FAERS Safety Report 20414668 (Version 1)
Quarter: 2022Q1

REPORT INFORMATION
  Report Type: Spontaneous
  Country: US (occurrence: US)
  Receive Date: 20220202
  Receipt Date: 20220202
  Transmission Date: 20220423
  Serious: No
  Sender: FDA-Public Use
  Company Number: US-CIPLA LTD.-2021US06870

PATIENT

DRUGS (1)
  1. ALBUTEROL\IPRATROPIUM [Suspect]
     Active Substance: ALBUTEROL\IPRATROPIUM
     Indication: Asthma
     Dosage: 1 VIAL, EVERY 4-6 HOURS AS NEEDED

REACTIONS (4)
  - Incorrect dose administered [Not Recovered/Not Resolved]
  - Product outer packaging issue [Unknown]
  - Product packaging difficult to open [Unknown]
  - Product substitution issue [Unknown]
